FAERS Safety Report 21064667 (Version 1)
Quarter: 2022Q3

REPORT INFORMATION
  Report Type: Spontaneous
  Country: US (occurrence: None)
  Receive Date: 20220710
  Receipt Date: 20220710
  Transmission Date: 20221027
  Serious: Yes (Other)
  Sender: FDA-Public Use
  Company Number: None

PATIENT
  Age: 41 Year
  Weight: 112.5 kg

DRUGS (1)
  1. NALTREXONE HYDROCHLORIDE [Suspect]
     Active Substance: NALTREXONE HYDROCHLORIDE
     Indication: Arthralgia
     Dosage: 1 CAPSULE(S)  DAILY ORAL? ?
     Route: 048
     Dates: start: 20220629, end: 20220707

REACTIONS (8)
  - Feeling abnormal [None]
  - Fatigue [None]
  - Heart rate increased [None]
  - Muscular weakness [None]
  - Anxiety [None]
  - Anaemia [None]
  - Viral infection [None]
  - Therapy cessation [None]

NARRATIVE: CASE EVENT DATE: 20220630
